FAERS Safety Report 19824344 (Version 1)
Quarter: 2021Q3

REPORT INFORMATION
  Report Type: Spontaneous
  Country: US (occurrence: US)
  Receive Date: 20210913
  Receipt Date: 20210913
  Transmission Date: 20211014
  Serious: No
  Sender: FDA-Public Use
  Company Number: US-KALA PHARAMACEUTICALS-2021KLA00058

PATIENT
  Age: 66 Year
  Sex: Male
  Weight: 102.04 kg

DRUGS (6)
  1. INVELTYS [Suspect]
     Active Substance: LOTEPREDNOL ETABONATE
     Indication: CORNEAL TRANSPLANT
     Dosage: 1 DROP, 3X/DAY IN LEFT EYE
     Route: 047
     Dates: start: 20210510
  2. GENTEAL TEARS (MILD) [Concomitant]
     Active Substance: DEXTRAN 70\HYPROMELLOSE 2910 (4000 MPA.S)
  3. REFRESH [Concomitant]
     Active Substance: UNSPECIFIED INGREDIENT
  4. UNSPECIFIED OTHER MEDICATION [Suspect]
     Active Substance: UNSPECIFIED INGREDIENT
  5. REFRESH PLUS [Concomitant]
     Active Substance: CARBOXYMETHYLCELLULOSE SODIUM
  6. OFLOXACIN. [Concomitant]
     Active Substance: OFLOXACIN

REACTIONS (2)
  - Foreign body sensation in eyes [Not Recovered/Not Resolved]
  - Off label use [Not Recovered/Not Resolved]

NARRATIVE: CASE EVENT DATE: 20210510
